FAERS Safety Report 16699219 (Version 2)
Quarter: 2019Q3

REPORT INFORMATION
  Report Type: Report from Study
  Country: US (occurrence: US)
  Receive Date: 20190813
  Receipt Date: 20190820
  Transmission Date: 20191004
  Serious: Yes (Hospitalization)
  Sender: FDA-Public Use
  Company Number: US-AMGEN-USANI2019127766

PATIENT
  Age: 62 Year
  Sex: Female
  Weight: 75 kg

DRUGS (21)
  1. CYCLOPHOSPHAMIDE. [Concomitant]
     Active Substance: CYCLOPHOSPHAMIDE
     Dosage: 1060 MILLIGRAM
     Route: 042
     Dates: start: 20190710, end: 20190731
  2. CHOLECALCIFEROL [Concomitant]
     Active Substance: CHOLECALCIFEROL
     Dosage: 1000 UNK
     Route: 048
     Dates: start: 20110224
  3. CITALOPRAM [Concomitant]
     Active Substance: CITALOPRAM HYDROBROMIDE
     Dosage: 40 MILLIGRAM
     Route: 048
     Dates: start: 20180302
  4. ASA [Concomitant]
     Active Substance: ASPIRIN
     Dosage: 81 MILLIGRAM
     Route: 048
     Dates: start: 20140922
  5. CARBAMAZEPINE. [Concomitant]
     Active Substance: CARBAMAZEPINE
     Dosage: 200 MILLIGRAM
     Route: 048
     Dates: start: 20140402
  6. EZETIMIBE. [Concomitant]
     Active Substance: EZETIMIBE
     Dosage: 10 MILLIGRAM
     Route: 048
     Dates: start: 20160426
  7. ON BODY INJECTOR(PEGFILGRASTIM) [Suspect]
     Active Substance: PEGFILGRASTIM
     Indication: NEUTROPENIA
     Dosage: 6 MILLIGRAM
     Route: 058
     Dates: start: 20190710
  8. ONDANSETRON [Concomitant]
     Active Substance: ONDANSETRON
     Dosage: 4-8 MILLIGRAM
     Route: 042
     Dates: start: 20190807, end: 20190807
  9. PALONOSETRON. [Concomitant]
     Active Substance: PALONOSETRON HYDROCHLORIDE
     Dosage: 0.25 MILLIGRAM
     Route: 042
     Dates: start: 20190710, end: 20190731
  10. MIRALAX [Concomitant]
     Active Substance: POLYETHYLENE GLYCOL 3350
     Dosage: 17 GRAM
     Route: 048
     Dates: start: 20190713
  11. CALCIUM CARBONATE. [Concomitant]
     Active Substance: CALCIUM CARBONATE
     Route: 048
  12. DOCETAXEL. [Concomitant]
     Active Substance: DOCETAXEL
     Dosage: 132 MILLIGRAM
     Route: 042
     Dates: start: 20190710, end: 20190731
  13. ALPRAZOLAM. [Concomitant]
     Active Substance: ALPRAZOLAM
     Dosage: 0.25 MILLIGRAM
     Route: 048
     Dates: start: 20190425
  14. PANTOPRAZOLE [Concomitant]
     Active Substance: PANTOPRAZOLE
     Dosage: 40 MILLIGRAM
     Route: 048
     Dates: start: 20131209, end: 20190808
  15. GABAPENTIN. [Concomitant]
     Active Substance: GABAPENTIN
     Dosage: 100 MILLIGRAM
     Route: 048
     Dates: start: 20141013
  16. CLOBETASOL [Concomitant]
     Active Substance: CLOBETASOL
     Dosage: 0.05 UNK
     Route: 061
     Dates: start: 20160413
  17. DEXAMETHASONE. [Concomitant]
     Active Substance: DEXAMETHASONE
     Dosage: 4-10 MILLIGRAM
     Dates: start: 20190710, end: 20190804
  18. CEFDINIR. [Concomitant]
     Active Substance: CEFDINIR
     Dosage: 300 MILLIGRAM
     Route: 048
     Dates: start: 20190716, end: 20190723
  19. FLUTICASONE. [Concomitant]
     Active Substance: FLUTICASONE
     Dosage: 50 MICROGRAM
     Route: 050
  20. CALCIUM CARBONATE. [Concomitant]
     Active Substance: CALCIUM CARBONATE
     Dosage: 1500 UNK
     Route: 048
  21. ROSUVASTATIN. [Concomitant]
     Active Substance: ROSUVASTATIN
     Dosage: 40 MILLIGRAM
     Route: 048
     Dates: start: 20110224

REACTIONS (2)
  - Back pain [Recovered/Resolved]
  - Pyrexia [Recovered/Resolved]

NARRATIVE: CASE EVENT DATE: 20190807
